FAERS Safety Report 5883280-5 (Version None)
Quarter: 2008Q3

REPORT INFORMATION
  Report Type: 
  Country: None (occurrence: None)
  Receive Date: 20080910
  Receipt Date: 20080910
  Transmission Date: 20090109
  Serious: Yes (Other)
  Sender: FDA-Public Use
  Company Number: None

PATIENT
  Sex: Male
  Weight: 105 kg

DRUGS (5)
  1. TYSABRI [Suspect]
     Indication: MULTIPLE SCLEROSIS
     Dosage: 300MG   Q 4 WEEKS INTRATHORACIC
     Route: 038
     Dates: start: 20080102, end: 20080102
  2. TYSABRI [Suspect]
     Indication: MULTIPLE SCLEROSIS
     Dosage: 300MG   Q 4 WEEKS INTRATHORACIC
     Route: 038
     Dates: start: 20080206, end: 20080206
  3. AMITRIPTYLINE HCL [Concomitant]
  4. DETROL LA [Concomitant]
  5. NEXIUM [Concomitant]

REACTIONS (8)
  - BLOOD PRESSURE SYSTOLIC INCREASED [None]
  - CHEST PAIN [None]
  - COLD SWEAT [None]
  - ERYTHEMA [None]
  - PRURITUS [None]
  - RESPIRATORY RATE INCREASED [None]
  - SINUS TACHYCARDIA [None]
  - URTICARIA [None]
